FAERS Safety Report 7287200-0 (Version None)
Quarter: 2011Q1

REPORT INFORMATION
  Report Type: 
  Country: None (occurrence: None)
  Receive Date: 20110211
  Receipt Date: 20110201
  Transmission Date: 20110831
  Serious: Yes (Other)
  Sender: FDA-Public Use
  Company Number: GB-TEVA-266550ISR

PATIENT
  Sex: Male

DRUGS (3)
  1. VALPROIC ACID [Suspect]
     Indication: EPILEPSY
  2. RISPERIDONE [Suspect]
     Route: 048
  3. RISPERIDONE [Suspect]

REACTIONS (1)
  - MICROCYTIC ANAEMIA [None]
